FAERS Safety Report 6421223-6 (Version None)
Quarter: 2009Q4

REPORT INFORMATION
  Report Type: 
  Country: None (occurrence: None)
  Receive Date: 20091029
  Receipt Date: 20091029
  Transmission Date: 20100525
  Serious: Yes (Other)
  Sender: FDA-Public Use
  Company Number: None

PATIENT
  Age: 33 Year
  Sex: Male
  Weight: 113.3993 kg

DRUGS (1)
  1. PAROXETINE HCL [Suspect]
     Indication: HYPERLIPIDAEMIA
     Dosage: 1 DAILY PO
     Route: 048
     Dates: start: 20090901, end: 20091001

REACTIONS (2)
  - NAUSEA [None]
  - WRONG DRUG ADMINISTERED [None]
